FAERS Safety Report 8287867-4 (Version None)
Quarter: 2012Q2

REPORT INFORMATION
  Report Type: 
  Country: None (occurrence: None)
  Receive Date: 20120411
  Receipt Date: 20120411
  Transmission Date: 20120825
  Serious: Yes (Hospitalization, Disabling, Other)
  Sender: FDA-Public Use
  Company Number: None

PATIENT
  Sex: Female
  Weight: 66.6788 kg

DRUGS (8)
  1. INDEROL [Concomitant]
  2. FOSAMAX [Suspect]
     Indication: OSTEOPOROSIS
     Dosage: 70MG ONE Q WK ORAL 047
     Route: 048
     Dates: start: 20060101
  3. FOSAMAX [Suspect]
     Indication: OSTEOPOROSIS
     Dosage: 70MG ONE Q WK ORAL 047
     Route: 048
     Dates: start: 20040513
  4. FOSAMAX [Suspect]
     Indication: OSTEOPOROSIS
     Dosage: 70MG ONE Q WK ORAL 047
     Route: 048
     Dates: start: 20100101
  5. MAXZIDE [Concomitant]
  6. CENESTIN [Concomitant]
  7. FOSAMAX [Suspect]
     Indication: OSTEOPOROSIS
     Dosage: 10 MG ONCE DAILY ORAL 047
     Route: 048
     Dates: start: 20011025, end: 20040101
  8. FOSAMAX [Suspect]
     Indication: OSTEOPENIA
     Dosage: 10 MG ONCE DAILY ORAL 047
     Route: 048
     Dates: start: 20011025, end: 20040101

REACTIONS (9)
  - DRUG DEPENDENCE [None]
  - MOBILITY DECREASED [None]
  - ASTHENIA [None]
  - OSTEOARTHRITIS [None]
  - STRESS FRACTURE [None]
  - FEMUR FRACTURE [None]
  - PAIN [None]
  - NO THERAPEUTIC RESPONSE [None]
  - BACK PAIN [None]
